FAERS Safety Report 6074122-6 (Version None)
Quarter: 2009Q1

REPORT INFORMATION
  Report Type: 
  Country: None (occurrence: None)
  Receive Date: 20090211
  Receipt Date: 20090206
  Transmission Date: 20090719
  Serious: Yes (Other)
  Sender: FDA-Public Use
  Company Number: B0557793A

PATIENT
  Age: 55 Year
  Sex: Female

DRUGS (19)
  1. AUGMENTIN '125' [Suspect]
     Dosage: 1G PER DAY
     Route: 048
     Dates: start: 20090114, end: 20090118
  2. LYRICA [Suspect]
     Dosage: 25MG THREE TIMES PER DAY
     Route: 048
     Dates: start: 20090117, end: 20090118
  3. INIPOMP [Suspect]
     Dosage: 20MG PER DAY
     Route: 048
     Dates: start: 20090117, end: 20090118
  4. GELOX [Suspect]
     Route: 048
     Dates: start: 20090117, end: 20090118
  5. RIVOTRIL [Suspect]
     Dosage: 5DROP PER DAY
     Route: 048
     Dates: start: 20090117, end: 20090118
  6. ACUPAN [Suspect]
     Dosage: 20MG PER DAY
     Route: 030
     Dates: start: 20090117, end: 20090118
  7. CALCIPARINE [Suspect]
     Route: 058
     Dates: start: 20090117, end: 20090118
  8. TACROLIMUS [Concomitant]
  9. CELLCEPT [Concomitant]
  10. SOLUPRED [Concomitant]
  11. ATORVASTATIN CALCIUM [Concomitant]
  12. TENORMIN [Concomitant]
  13. SPECIAFOLDINE [Concomitant]
  14. TRIATEC [Concomitant]
  15. NOVONORM [Concomitant]
     Dates: end: 20090115
  16. ACTOS [Concomitant]
     Dates: end: 20090115
  17. EZETROL [Concomitant]
  18. FOSAMAX [Concomitant]
  19. PERFALGAN [Concomitant]
     Dates: start: 20090114

REACTIONS (2)
  - PALATAL OEDEMA [None]
  - RESPIRATORY DISORDER [None]
